FAERS Safety Report 4735741-X (Version None)
Quarter: 2005Q3

REPORT INFORMATION
  Report Type: 
  Country: None (occurrence: None)
  Receive Date: 20050803
  Receipt Date: 20050711
  Transmission Date: 20060218
  Serious: Yes (Hospitalization, Other)
  Sender: FDA-Public Use
  Company Number: USA0507102356

PATIENT
  Age: 59 Year
  Sex: Female

DRUGS (2)
  1. HUMULIN N [Suspect]
     Indication: DIABETES MELLITUS
     Dosage: 22 U/2 DAY
     Dates: start: 19990101
  2. HUMULIN R [Suspect]
     Indication: DIABETES MELLITUS
     Dosage: 6 U/2 DAY
     Dates: start: 19990101

REACTIONS (2)
  - BLOOD GLUCOSE FLUCTUATION [None]
  - URINARY TRACT DISORDER [None]
